FAERS Safety Report 11719775 (Version 1)
Quarter: 2015Q4

REPORT INFORMATION
  Report Type: Spontaneous
  Country: US (occurrence: US)
  Receive Date: 20151110
  Receipt Date: 20151110
  Transmission Date: 20160304
  Serious: Yes (Other)
  Sender: FDA-Public Use
  Company Number: US-009507513-1511USA003957

PATIENT
  Sex: Male

DRUGS (1)
  1. ISENTRESS [Suspect]
     Active Substance: RALTEGRAVIR POTASSIUM
     Route: 048

REACTIONS (5)
  - Intervertebral disc degeneration [Unknown]
  - Arthralgia [Unknown]
  - Diabetes mellitus [Unknown]
  - Joint swelling [Unknown]
  - Deafness [Unknown]
